FAERS Safety Report 8610315-9 (Version None)
Quarter: 2012Q3

REPORT INFORMATION
  Report Type: 
  Country: None (occurrence: None)
  Receive Date: 20120822
  Receipt Date: 20120817
  Transmission Date: 20120928
  Serious: Yes (Other)
  Sender: FDA-Public Use
  Company Number: PHFR2012IE004279

PATIENT
  Sex: Female

DRUGS (4)
  1. CLOZARIL [Suspect]
     Dosage: 525 MG, QD
     Route: 048
     Dates: start: 20120711, end: 20120801
  2. CLOZARIL [Suspect]
     Indication: SCHIZOPHRENIA
     Route: 048
     Dates: start: 20110705
  3. LAMOTRIGINE [Concomitant]
     Dosage: 100 MG, BID
     Route: 048
     Dates: start: 20120704
  4. VENLAFAXINE [Concomitant]
     Dosage: 150 MG, UNK
     Route: 048
     Dates: start: 20110202

REACTIONS (5)
  - NEUTROPHIL COUNT DECREASED [None]
  - NEUTROPENIA [None]
  - KIDNEY INFECTION [None]
  - NEUTROPHIL COUNT INCREASED [None]
  - WHITE BLOOD CELL COUNT INCREASED [None]
